FAERS Safety Report 16790235 (Version 1)
Quarter: 2019Q4

REPORT INFORMATION
  Report Type: Spontaneous
  Country: US (occurrence: US)
  Receive Date: 20190909
  Receipt Date: 20190909
  Transmission Date: 20200122
  Serious: No
  Sender: FDA-Public Use
  Company Number: None

PATIENT
  Age: 76 Year
  Sex: Male
  Weight: 90 kg

DRUGS (6)
  1. ATORVASTATIN [Concomitant]
     Active Substance: ATORVASTATIN
  2. BABY ASPIRIN [Concomitant]
     Active Substance: ASPIRIN
  3. TAMSULOSIN 0.4 MG [Suspect]
     Active Substance: TAMSULOSIN
     Indication: PROSTATOMEGALY
     Dosage: ?          QUANTITY:90 CAPSULE(S);?
     Route: 048
  4. TAMSULOSIN [Concomitant]
     Active Substance: TAMSULOSIN
  5. METOPROLOL. [Concomitant]
     Active Substance: METOPROLOL
  6. LASIX [Concomitant]
     Active Substance: FUROSEMIDE

REACTIONS (3)
  - Product substitution issue [None]
  - Product physical issue [None]
  - Drug ineffective [None]

NARRATIVE: CASE EVENT DATE: 20190716
